FAERS Safety Report 19823973 (Version 1)
Quarter: 2021Q3

REPORT INFORMATION
  Report Type: Spontaneous
  Country: FR (occurrence: FR)
  Receive Date: 20210914
  Receipt Date: 20210914
  Transmission Date: 20211014
  Serious: Yes (Other)
  Sender: FDA-Public Use
  Company Number: FR-AUROBINDO-AUR-APL-2021-038575

PATIENT
  Age: 64 Year
  Sex: Male

DRUGS (5)
  1. ATENOLOL TEVA [Suspect]
     Active Substance: ATENOLOL
     Indication: CARDIAC DISORDER
     Dosage: 100 MILLIGRAM, THERAPY DURATION?13 OR 15 YEARS
     Route: 065
  2. KARDEGIC [Concomitant]
     Active Substance: ASPIRIN DL-LYSINE
     Indication: PRODUCT USED FOR UNKNOWN INDICATION
     Dosage: UNK, STARTED 5 YEARS AGO
     Route: 065
     Dates: start: 2016
  3. ALLOPURINOL. [Concomitant]
     Active Substance: ALLOPURINOL
     Indication: PRODUCT USED FOR UNKNOWN INDICATION
     Dosage: UNK, STARTED 5 YEARS AGO
     Route: 065
     Dates: start: 2016
  4. PERINDOPRIL [Suspect]
     Active Substance: PERINDOPRIL
     Indication: PRODUCT USED FOR UNKNOWN INDICATION
     Dosage: UNK, STARTED TEN YEARS AGO
     Route: 065
     Dates: start: 2011, end: 20210820
  5. LIPTRUZET [Concomitant]
     Active Substance: ATORVASTATIN CALCIUM\EZETIMIBE
     Indication: HYPERCHOLESTEROLAEMIA
     Dosage: UNK,STARTED ABOUT TEN YEARS AGO
     Route: 065
     Dates: start: 2011

REACTIONS (2)
  - Toxic skin eruption [Not Recovered/Not Resolved]
  - Dermatitis acneiform [Recovering/Resolving]

NARRATIVE: CASE EVENT DATE: 202108
